FAERS Safety Report 7660358-7 (Version None)
Quarter: 2011Q3

REPORT INFORMATION
  Report Type: 
  Country: None (occurrence: None)
  Receive Date: 20110805
  Receipt Date: 20110729
  Transmission Date: 20111222
  Serious: Yes (Hospitalization)
  Sender: FDA-Public Use
  Company Number: IN-BAXTER-2011BH024865

PATIENT
  Age: 75 Year
  Sex: Male
  Weight: 62 kg

DRUGS (3)
  1. DIANEAL PD-2 W/ DEXTROSE 1.5% [Suspect]
     Indication: PERITONEAL DIALYSIS
     Route: 033
  2. VANCOMYCIN [Concomitant]
     Indication: INFECTIOUS PERITONITIS
     Route: 042
     Dates: start: 20110627, end: 20110703
  3. PIPERACILLIN AND TAZOBACTAM [Concomitant]
     Indication: INFECTIOUS PERITONITIS
     Route: 042
     Dates: start: 20110627, end: 20110706

REACTIONS (3)
  - NAUSEA [None]
  - HYPOTENSION [None]
  - DIARRHOEA [None]
